FAERS Safety Report 13486903 (Version 1)
Quarter: 2017Q2

REPORT INFORMATION
  Report Type: Report from Study
  Country: US (occurrence: US)
  Receive Date: 20170426
  Receipt Date: 20170426
  Transmission Date: 20170830
  Serious: Yes (Other)
  Sender: FDA-Public Use
  Company Number: US-UCBSA-2017015145

PATIENT
  Sex: Female

DRUGS (12)
  1. PRIMIDONE. [Concomitant]
     Active Substance: PRIMIDONE
     Indication: ANXIETY
  2. NAPROXEN. [Concomitant]
     Active Substance: NAPROXEN
     Indication: PAIN
     Dosage: UNK, 2X/DAY (BID)
  3. SAPHRIS [Concomitant]
     Active Substance: ASENAPINE MALEATE
     Indication: PRODUCT USED FOR UNKNOWN INDICATION
     Dosage: UNK, AS NEEDED (PRN)
  4. QUETIAPINE. [Concomitant]
     Active Substance: QUETIAPINE
     Indication: ANXIETY
  5. LEVETIRACETAM. [Suspect]
     Active Substance: LEVETIRACETAM
     Indication: ANXIETY
  6. ZYRTEC [Suspect]
     Active Substance: CETIRIZINE HYDROCHLORIDE
     Indication: HYPERSENSITIVITY
     Dosage: UNK
  7. MONTELUKAST [Concomitant]
     Active Substance: MONTELUKAST SODIUM
     Indication: PRODUCT USED FOR UNKNOWN INDICATION
  8. QUETIAPINE. [Concomitant]
     Active Substance: QUETIAPINE
     Indication: BIPOLAR DISORDER
  9. LAMICTAL [Concomitant]
     Active Substance: LAMOTRIGINE
     Indication: BIPOLAR DISORDER
  10. PRIMIDONE. [Concomitant]
     Active Substance: PRIMIDONE
     Indication: BIPOLAR DISORDER
  11. LEVETIRACETAM. [Suspect]
     Active Substance: LEVETIRACETAM
     Indication: BIPOLAR DISORDER
     Dosage: UNK
  12. CLONIDINE. [Concomitant]
     Active Substance: CLONIDINE
     Indication: BIPOLAR DISORDER
     Dosage: UNK, 2X/DAY (BID)

REACTIONS (11)
  - Insomnia [Unknown]
  - Loss of consciousness [Unknown]
  - Mood swings [Unknown]
  - Tremor [Unknown]
  - Obsessive-compulsive disorder [Unknown]
  - Homicidal ideation [Unknown]
  - Bipolar disorder [Unknown]
  - Anger [Unknown]
  - Cold sweat [Unknown]
  - Anxiety [Unknown]
  - Intentional product misuse [Unknown]
